FAERS Safety Report 10656817 (Version 9)
Quarter: 2015Q2

REPORT INFORMATION
  Report Type: Spontaneous
  Country: US (occurrence: US)
  Receive Date: 20141217
  Receipt Date: 20150605
  Transmission Date: 20150821
  Serious: Yes (Other)
  Sender: FDA-Public Use
  Company Number: US-009507513-1412USA003854

PATIENT
  Age: 23 Year
  Sex: Female
  Weight: 73.16 kg

DRUGS (1)
  1. IMPLANON [Suspect]
     Active Substance: ETONOGESTREL
     Dosage: STRENGTH: 68, UNITS: NOT PROVIDED
     Route: 059
     Dates: start: 20110705

REACTIONS (4)
  - Surgery [Unknown]
  - Medical device complication [Recovered/Resolved]
  - Device dislocation [Unknown]
  - Device difficult to use [Unknown]

NARRATIVE: CASE EVENT DATE: 20141008
